FAERS Safety Report 6164709-4 (Version None)
Quarter: 2009Q2

REPORT INFORMATION
  Report Type: 
  Country: None (occurrence: None)
  Receive Date: 20090423
  Receipt Date: 20090413
  Transmission Date: 20091009
  Serious: Yes (Hospitalization)
  Sender: FDA-Public Use
  Company Number: US-ROCHE-625286

PATIENT
  Age: 73 Year
  Sex: Female

DRUGS (7)
  1. BONIVA [Suspect]
     Indication: OSTEOPOROSIS
     Route: 048
     Dates: start: 20071201, end: 20080201
  2. BONIVA [Suspect]
     Route: 048
     Dates: start: 20090201
  3. ACIPHEX [Concomitant]
     Dosage: DOSE: 20, FREQ: DAY
     Route: 048
  4. SYNTHROID [Concomitant]
     Indication: HYPOTHYROIDISM
     Route: 048
  5. ASPIRIN [Concomitant]
     Dosage: DRUG REPORTED AS BABY ASA
  6. AVAPRO [Concomitant]
     Indication: HYPERTENSION
     Dosage: DRUG REPORTED AS: ABAPRO
     Route: 048
  7. URSODIOL [Concomitant]
     Dosage: DRUG REPORTED AS: URISOVIOL; INDICATION REPORTED AS PSC
     Route: 048

REACTIONS (5)
  - EXPIRED DRUG ADMINISTERED [None]
  - HYSTERECTOMY [None]
  - LIMB OPERATION [None]
  - LUNG NEOPLASM [None]
  - NO ADVERSE EVENT [None]
